FAERS Safety Report 20415228 (Version 3)
Quarter: 2022Q2

REPORT INFORMATION
  Report Type: Spontaneous
  Country: JP (occurrence: JP)
  Receive Date: 20220202
  Receipt Date: 20220513
  Transmission Date: 20220721
  Serious: Yes (Other)
  Sender: FDA-Public Use
  Company Number: JP-Accord-252205

PATIENT
  Age: 70 Year
  Sex: Male
  Weight: 64 kg

DRUGS (4)
  1. FLUOROURACIL [Suspect]
     Active Substance: FLUOROURACIL
     Indication: Pancreatic carcinoma metastatic
     Dosage: RELATIVE DOSE AT 6 MONTHS AFTER BEGINNING OF TREATMENT WAS 88.3 PERCENT, 2,400 MG/M2?,46 HOURS, DAY
  2. OXALIPLATIN [Suspect]
     Active Substance: OXALIPLATIN
     Indication: Pancreatic carcinoma metastatic
     Dosage: RELATIVE DOSE AT 6 MONTHS AFTER BEGINNING OF TREATMENT WAS 77.6, PERCENT, 85 MG/M2?, DAY 1
  3. IRINOTECAN [Suspect]
     Active Substance: IRINOTECAN
     Indication: Pancreatic carcinoma metastatic
     Dosage: RELATIVE DOSE AT 6 MONTHS AFTER BEGINNING OF TREATMENT WAS 84.0  PERCENT, 150 MG/M2?, DAY 1
  4. LEUCOVORIN [Suspect]
     Active Substance: LEUCOVORIN
     Indication: Pancreatic carcinoma metastatic
     Dosage: 200 MG/M2

REACTIONS (11)
  - Thrombocytopenia [Unknown]
  - Hypoalbuminaemia [Unknown]
  - Hypokalaemia [Unknown]
  - Blood alkaline phosphatase increased [Unknown]
  - Hypertension [Unknown]
  - Peripheral sensory neuropathy [Unknown]
  - Fatigue [Unknown]
  - Decreased appetite [Unknown]
  - Nausea [Unknown]
  - Anaemia [Unknown]
  - Malaise [Unknown]
